FAERS Safety Report 24386551 (Version 2)
Quarter: 2025Q2

REPORT INFORMATION
  Report Type: Report from Study
  Country: US (occurrence: US)
  Receive Date: 20241002
  Receipt Date: 20250613
  Transmission Date: 20250716
  Serious: Yes (Life-Threatening, Hospitalization)
  Sender: ROCHE
  Company Number: US-ROCHE-10000073258

PATIENT
  Age: 32 Year
  Sex: Male
  Weight: 98 kg

DRUGS (1)
  1. EVRYSDI [Suspect]
     Active Substance: RISDIPLAM
     Indication: Spinal muscular atrophy
     Route: 048
     Dates: start: 20201202, end: 20211112

REACTIONS (2)
  - Pneumonia [Not Recovered/Not Resolved]
  - Pneumothorax [Recovering/Resolving]
